FAERS Safety Report 16801610 (Version 4)
Quarter: 2019Q4

REPORT INFORMATION
  Report Type: Report from Study
  Country: None (occurrence: CN)
  Receive Date: 20190912
  Receipt Date: 20191031
  Transmission Date: 20200122
  Serious: Yes (Life-Threatening, Hospitalization)
  Sender: FDA-Public Use
  Company Number: CN-ABBVIE-19K-035-2913637-00

PATIENT
  Age: 60 Year
  Sex: Male
  Weight: 62 kg

DRUGS (34)
  1. 5% SODIUM BICARBONATE [Concomitant]
     Route: 042
     Dates: start: 20190704, end: 20190704
  2. NORMAL SALINE SOLUTION [Concomitant]
     Indication: PROPHYLAXIS
     Route: 042
     Dates: start: 20190619, end: 20190621
  3. NORMAL SALINE SOLUTION [Concomitant]
     Route: 042
     Dates: start: 20190704, end: 20190705
  4. RECOMBINANT HUMAN GRANULOCYTE COLONY STIMULATING FACTOR [Concomitant]
     Indication: WHITE BLOOD CELL COUNT DECREASED
     Route: 058
     Dates: start: 20190624, end: 20190624
  5. RECOMBINANT HUMAN GRANULOCYTE COLONY STIMULATING FACTOR [Concomitant]
     Indication: NEUTROPENIA
     Route: 058
     Dates: start: 20190626, end: 20190626
  6. METFORMIN HYDROCHLORIDE. [Concomitant]
     Active Substance: METFORMIN HYDROCHLORIDE
     Indication: TYPE 2 DIABETES MELLITUS
     Route: 048
     Dates: start: 2013
  7. VENETOCLAX. [Suspect]
     Active Substance: VENETOCLAX
     Route: 048
     Dates: start: 20190627, end: 20190703
  8. RECOMBINANT HUMAN GRANULOCYTE COLONY STIMULATING FACTOR [Concomitant]
     Route: 058
     Dates: start: 20190628, end: 20190628
  9. RECOMBINANT HUMAN GRANULOCYTE COLONY STIMULATING FACTOR [Concomitant]
     Route: 058
     Dates: start: 20190930, end: 20190930
  10. 5% SODIUM BICARBONATE [Concomitant]
     Route: 042
     Dates: start: 20190712, end: 20190712
  11. NORMAL SALINE SOLUTION [Concomitant]
     Dates: start: 20190622, end: 20190625
  12. RECOMBINANT HUMAN GRANULOCYTE COLONY STIMULATING FACTOR [Concomitant]
     Indication: LEUKOPENIA
     Route: 058
     Dates: start: 20190625, end: 20190625
  13. LEVOTHYROXINE SODIUM. [Concomitant]
     Active Substance: LEVOTHYROXINE SODIUM
     Indication: THYROID HORMONE REPLACEMENT THERAPY
     Route: 048
     Dates: start: 2006
  14. 5% SODIUM BICARBONATE [Concomitant]
     Route: 042
     Dates: start: 20190718, end: 20190718
  15. 5% SODIUM BICARBONATE [Concomitant]
     Route: 042
     Dates: start: 20190626, end: 20190626
  16. 5% SODIUM BICARBONATE [Concomitant]
     Route: 042
     Dates: start: 20190705, end: 20190705
  17. NORMAL SALINE SOLUTION [Concomitant]
     Route: 042
     Dates: start: 20190711, end: 20190712
  18. LACTATED RINGERS SOLUTION [Concomitant]
     Active Substance: CALCIUM CHLORIDE\POTASSIUM CHLORIDE\SODIUM CHLORIDE\SODIUM LACTATE
     Route: 042
     Dates: start: 20190718, end: 20190718
  19. LACTATED RINGERS SOLUTION [Concomitant]
     Active Substance: CALCIUM CHLORIDE\POTASSIUM CHLORIDE\SODIUM CHLORIDE\SODIUM LACTATE
     Route: 042
     Dates: start: 20190718, end: 20190718
  20. VENETOCLAX. [Suspect]
     Active Substance: VENETOCLAX
     Route: 048
     Dates: start: 20190704, end: 20190710
  21. 5% SODIUM BICARBONATE [Concomitant]
     Route: 042
     Dates: start: 20190711, end: 20190711
  22. LACTATED RINGERS SOLUTION [Concomitant]
     Active Substance: CALCIUM CHLORIDE\POTASSIUM CHLORIDE\SODIUM CHLORIDE\SODIUM LACTATE
     Route: 042
     Dates: start: 20190711, end: 20190712
  23. VENETOCLAX. [Suspect]
     Active Substance: VENETOCLAX
     Indication: CHRONIC LYMPHOCYTIC LEUKAEMIA
     Route: 048
     Dates: start: 20190620, end: 20190626
  24. VENETOCLAX. [Suspect]
     Active Substance: VENETOCLAX
     Route: 048
     Dates: start: 20190718, end: 20190906
  25. 5% SODIUM BICARBONATE [Concomitant]
     Indication: PROPHYLAXIS
     Route: 042
     Dates: start: 20190619, end: 20190621
  26. 5% SODIUM BICARBONATE [Concomitant]
     Route: 042
     Dates: start: 20190718, end: 20190718
  27. NORMAL SALINE SOLUTION [Concomitant]
     Route: 042
     Dates: start: 20190718, end: 20190718
  28. NORMAL SALINE SOLUTION [Concomitant]
     Route: 042
     Dates: start: 20190718, end: 20190718
  29. VENETOCLAX. [Suspect]
     Active Substance: VENETOCLAX
     Route: 048
     Dates: start: 20190711, end: 20190717
  30. 5% SODIUM BICARBONATE [Concomitant]
     Route: 042
     Dates: start: 20190621, end: 20190628
  31. LACTATED RINGERS SOLUTION [Concomitant]
     Active Substance: CALCIUM CHLORIDE\POTASSIUM CHLORIDE\SODIUM CHLORIDE\SODIUM LACTATE
     Indication: PROPHYLAXIS
     Route: 042
     Dates: start: 20190704, end: 20190705
  32. RECOMBINANT HUMAN GRANULOCYTE COLONY STIMULATING FACTOR [Concomitant]
     Route: 058
     Dates: start: 20190627, end: 20190627
  33. RECOMBINANT HUMAN GRANULOCYTE COLONY STIMULATING FACTOR [Concomitant]
     Route: 058
     Dates: start: 20190928, end: 20190928
  34. ALLOPURINOL. [Concomitant]
     Active Substance: ALLOPURINOL
     Indication: PROPHYLAXIS
     Route: 048
     Dates: start: 20190619, end: 20190719

REACTIONS (3)
  - Acute kidney injury [Not Recovered/Not Resolved]
  - Hyperuricaemia [Recovered/Resolved]
  - Hypercalcaemia [Recovered/Resolved]

NARRATIVE: CASE EVENT DATE: 20190904
